FAERS Safety Report 18285404 (Version 1)
Quarter: 2020Q3

REPORT INFORMATION
  Report Type: Spontaneous
  Country: KR (occurrence: KR)
  Receive Date: 20200918
  Receipt Date: 20200918
  Transmission Date: 20201103
  Serious: Yes (Other)
  Sender: FDA-Public Use
  Company Number: KR-BAYER-2020-198076

PATIENT
  Sex: Female

DRUGS (1)
  1. YAZ [Suspect]
     Active Substance: DROSPIRENONE\ETHINYL ESTRADIOL
     Indication: POLYCYSTIC OVARIES
     Dosage: UNK
     Route: 048
     Dates: start: 2020

REACTIONS (4)
  - Product use in unapproved indication [None]
  - Foreign body in throat [None]
  - Abnormal withdrawal bleeding [None]
  - Vaginal discharge [None]

NARRATIVE: CASE EVENT DATE: 20200908
